FAERS Safety Report 9694119 (Version 2)
Quarter: 2013Q4

REPORT INFORMATION
  Report Type: Report from Study
  Country: US (occurrence: US)
  Receive Date: 20131118
  Receipt Date: 20131125
  Transmission Date: 20140711
  Serious: Yes (Other)
  Sender: FDA-Public Use
  Company Number: US-ABBVIE-13P-163-1168096-00

PATIENT
  Age: 25 Year
  Sex: Female
  Weight: 54.03 kg

DRUGS (2)
  1. HUMIRA [Suspect]
     Indication: CROHN^S DISEASE
     Dates: start: 2008
  2. LORAZEPAM [Concomitant]
     Indication: ANXIETY

REACTIONS (7)
  - Anal stenosis [Recovered/Resolved]
  - Anal fistula [Recovered/Resolved]
  - Constipation [Recovered/Resolved]
  - Proctalgia [Recovered/Resolved]
  - Colostomy [Unknown]
  - Psoriasis [Unknown]
  - Treatment noncompliance [Unknown]
